FAERS Safety Report 25342534 (Version 1)
Quarter: 2025Q2

REPORT INFORMATION
  Report Type: Spontaneous
  Country: US (occurrence: US)
  Receive Date: 20250521
  Receipt Date: 20250521
  Transmission Date: 20250716
  Serious: No
  Sender: CATALYST PHARMA
  Company Number: US-CATALYST PHARMACEUTICALS-US-CATA-25-00457

PATIENT
  Sex: Male
  Weight: 55.737 kg

DRUGS (4)
  1. AGAMREE [Suspect]
     Active Substance: VAMOROLONE
     Indication: Duchenne muscular dystrophy
     Dosage: 7.5 ML DAILY
     Route: 048
     Dates: start: 20250121
  2. LISINOPRIL [Concomitant]
     Active Substance: LISINOPRIL
     Indication: Duchenne muscular dystrophy
     Dosage: 10 MG DAILY
     Route: 048
  3. EQL VITAMIN D3 [Concomitant]
     Indication: Hypovitaminosis
     Dosage: 1000 UNITS DAILY
     Route: 048
  4. PX CALCIUM ANTACID [Concomitant]
     Indication: Hypovitaminosis
     Dosage: 500 MG DAILY
     Route: 048

REACTIONS (3)
  - Malaise [Recovered/Resolved]
  - Diarrhoea [Recovered/Resolved]
  - Product use complaint [Unknown]

NARRATIVE: CASE EVENT DATE: 20250101
